FAERS Safety Report 25408974 (Version 1)
Quarter: 2025Q2

REPORT INFORMATION
  Report Type: Spontaneous
  Country: US (occurrence: US)
  Receive Date: 20250607
  Receipt Date: 20250607
  Transmission Date: 20250717
  Serious: No
  Sender: ELI LILLY AND COMPANY
  Company Number: US-ELI_LILLY_AND_COMPANY-US202506005434

PATIENT
  Age: 59 Year
  Sex: Male

DRUGS (9)
  1. ZEPBOUND [Suspect]
     Active Substance: TIRZEPATIDE
     Indication: Injection site rash
     Route: 058
     Dates: start: 20250515
  2. ZEPBOUND [Suspect]
     Active Substance: TIRZEPATIDE
     Indication: Injection site rash
     Route: 058
     Dates: start: 20250515
  3. ZEPBOUND [Suspect]
     Active Substance: TIRZEPATIDE
     Indication: Injection site rash
     Route: 058
     Dates: start: 20250515
  4. ZEPBOUND [Suspect]
     Active Substance: TIRZEPATIDE
     Indication: Injection site rash
     Route: 058
     Dates: start: 20250515
  5. ZEPBOUND [Suspect]
     Active Substance: TIRZEPATIDE
     Indication: Injection site pain
  6. ZEPBOUND [Suspect]
     Active Substance: TIRZEPATIDE
     Indication: Injection site pain
  7. ZEPBOUND [Suspect]
     Active Substance: TIRZEPATIDE
     Indication: Injection site pain
  8. ZEPBOUND [Suspect]
     Active Substance: TIRZEPATIDE
     Indication: Injection site pain
  9. ATORVASTATIN [Concomitant]
     Active Substance: ATORVASTATIN
     Indication: Blood cholesterol
     Route: 065

REACTIONS (3)
  - Injection site rash [Not Recovered/Not Resolved]
  - Injection site pain [Not Recovered/Not Resolved]
  - Off label use [Unknown]

NARRATIVE: CASE EVENT DATE: 20250515
